FAERS Safety Report 16478536 (Version 1)
Quarter: 2019Q2

REPORT INFORMATION
  Report Type: Spontaneous
  Country: US (occurrence: US)
  Receive Date: 20190626
  Receipt Date: 20190626
  Transmission Date: 20190711
  Serious: No
  Sender: FDA-Public Use
  Company Number: US-PFIZER INC-2019271742

PATIENT
  Age: 6 Year
  Sex: Male

DRUGS (2)
  1. GENOTROPIN [Suspect]
     Active Substance: SOMATROPIN
     Indication: OPTIC NERVE HYPOPLASIA
     Dosage: 0.6 MG, DAILY
     Dates: start: 20150403
  2. GENOTROPIN [Suspect]
     Active Substance: SOMATROPIN
     Indication: HORMONE THERAPY

REACTIONS (2)
  - Product dose omission [Unknown]
  - Insulin-like growth factor decreased [Unknown]

NARRATIVE: CASE EVENT DATE: 201806
